FAERS Safety Report 7369781-1 (Version None)
Quarter: 2011Q1

REPORT INFORMATION
  Report Type: 
  Country: None (occurrence: None)
  Receive Date: 20110323
  Receipt Date: 20110315
  Transmission Date: 20110831
  Serious: Yes (Other)
  Sender: FDA-Public Use
  Company Number: AU-GENZYME-POMP-1001415

PATIENT
  Sex: Female
  Weight: 47 kg

DRUGS (4)
  1. ACTONEL [Concomitant]
     Indication: OSTEOPOROSIS
     Dosage: 35 MG, 1X/W
     Dates: start: 20070101, end: 20101201
  2. MYOZYME [Suspect]
     Indication: GLYCOGEN STORAGE DISEASE TYPE II
     Dosage: 950 MG, Q2W
     Route: 042
     Dates: start: 20090729, end: 20110318
  3. EVISTA [Concomitant]
     Indication: OSTEOPOROSIS
     Dosage: 60 MG, QD
     Dates: start: 20101201, end: 20110309
  4. LOVAN [Concomitant]
     Indication: DEPRESSION
     Dosage: 10 MG, QD
     Dates: start: 20110310, end: 20110314

REACTIONS (13)
  - BURNING SENSATION [None]
  - FEELING ABNORMAL [None]
  - SKIN BURNING SENSATION [None]
  - PAROSMIA [None]
  - ANXIETY [None]
  - DYSGEUSIA [None]
  - CHILLS [None]
  - NERVOUSNESS [None]
  - DEPRESSED MOOD [None]
  - HYPERHIDROSIS [None]
  - DECREASED APPETITE [None]
  - NAUSEA [None]
  - TEARFULNESS [None]
